FAERS Safety Report 8380448-3 (Version None)
Quarter: 2012Q2

REPORT INFORMATION
  Report Type: 
  Country: None (occurrence: None)
  Receive Date: 20120523
  Receipt Date: 20120515
  Transmission Date: 20120825
  Serious: Yes (Death, Hospitalization)
  Sender: FDA-Public Use
  Company Number: US-GLAXOSMITHKLINE-A0975782A

PATIENT
  Age: 91 Year
  Sex: Female
  Weight: 64.5 kg

DRUGS (15)
  1. MELPHALAN [Suspect]
     Indication: MULTIPLE MYELOMA
     Dosage: 10MG SEE DOSAGE TEXT
     Route: 048
     Dates: start: 20110503, end: 20111029
  2. ASPIRIN [Concomitant]
     Dosage: 81MG PER DAY
     Dates: end: 20111102
  3. PROTONIX [Concomitant]
     Dosage: 40MG PER DAY
  4. SYNTHROID [Concomitant]
     Dosage: 50MCG PER DAY
  5. CELEBREX [Concomitant]
     Dosage: 200MG PER DAY
     Dates: end: 20111102
  6. FERROUS SULFATE TAB [Concomitant]
     Dosage: 325MG TWICE PER DAY
  7. PERCOCET [Concomitant]
     Dates: end: 20111102
  8. LISINOPRIL [Concomitant]
     Dosage: 5MG PER DAY
  9. OXYCONTIN [Concomitant]
     Dosage: 10MG TWICE PER DAY
     Dates: end: 20111102
  10. BORTEZOMIB [Suspect]
     Indication: MULTIPLE MYELOMA
     Dosage: 2MG SEE DOSAGE TEXT
     Route: 042
     Dates: start: 20110503, end: 20111029
  11. ZINC SULFATE [Concomitant]
     Dosage: 50MG PER DAY
  12. CALCIUM + D [Concomitant]
  13. DEXAMETHASONE [Concomitant]
     Dosage: 4MG TWICE PER DAY
  14. OXYCODONE HCL [Concomitant]
     Route: 048
     Dates: start: 20111025
  15. TYLENOL [Concomitant]
     Dosage: 1000MG THREE TIMES PER DAY

REACTIONS (26)
  - ABDOMINAL PAIN [None]
  - COAGULOPATHY [None]
  - GENERAL PHYSICAL HEALTH DETERIORATION [None]
  - CONFUSIONAL STATE [None]
  - HALLUCINATION [None]
  - INTERNAL INJURY [None]
  - DEHYDRATION [None]
  - EMOTIONAL DISTRESS [None]
  - DISORIENTATION [None]
  - OEDEMA PERIPHERAL [None]
  - ABDOMINAL TENDERNESS [None]
  - ACUTE ABDOMEN [None]
  - METASTASIS [None]
  - LIVEDO RETICULARIS [None]
  - URINARY TRACT INFECTION [None]
  - PANCYTOPENIA [None]
  - BACK PAIN [None]
  - RASH VESICULAR [None]
  - HYPOPHAGIA [None]
  - CONTUSION [None]
  - MULTIPLE MYELOMA [None]
  - NEOPLASM MALIGNANT [None]
  - HERPES ZOSTER [None]
  - THROMBOCYTOPENIA [None]
  - FAILURE TO THRIVE [None]
  - PAIN [None]
